FAERS Safety Report 23624942 (Version 1)
Quarter: 2024Q1

REPORT INFORMATION
  Report Type: Spontaneous
  Country: IT (occurrence: IT)
  Receive Date: 20240313
  Receipt Date: 20240313
  Transmission Date: 20240410
  Serious: Yes (Hospitalization)
  Sender: FDA-Public Use
  Company Number: None

PATIENT
  Age: 71 Year
  Sex: Female

DRUGS (7)
  1. CLONAZEPAM [Suspect]
     Active Substance: CLONAZEPAM
     Dosage: USUAL THERAPY: 10 GTT/DAY?DOSE TAKEN FOR SELF-HARM PURPOSES: 1 BOTTLE OF DROPS
     Route: 048
  2. LYRICA [Suspect]
     Active Substance: PREGABALIN
     Indication: Neuralgia
     Dosage: USUAL THERAPY: 75 MG/DAY?DOSE TAKEN FOR SELF-HARM PURPOSES: 8 TABLETS OF 75 MG
     Route: 048
  3. LYRICA [Suspect]
     Active Substance: PREGABALIN
     Indication: Intentional self-injury
     Dosage: USUAL THERAPY: 75 MG/DAY?DOSE TAKEN FOR SELF-HARM PURPOSES: 8 TABLETS OF 75 MG
     Route: 048
  4. DULOXETINE [Suspect]
     Active Substance: DULOXETINE
     Indication: Intentional self-injury
     Dosage: USUAL THERAPY: 60 MG/DAY?DOSE TAKEN FOR SELF-HARM PURPOSES: 12 TABLETS OF 60 MG
     Route: 048
  5. DULOXETINE [Suspect]
     Active Substance: DULOXETINE
     Indication: Depression
     Dosage: USUAL THERAPY: 60 MG/DAY?DOSE TAKEN FOR SELF-HARM PURPOSES: 12 TABLETS OF 60 MG
     Route: 048
  6. TRAMADOL HYDROCHLORIDE [Suspect]
     Active Substance: TRAMADOL HYDROCHLORIDE
     Indication: Intentional self-injury
     Dosage: USUAL THERAPY: 40 GTT/DAY?DOSE TAKEN FOR SELF-HARM PURPOSES: 1 BOTTLE OF DROPS
     Route: 048
  7. TRAMADOL HYDROCHLORIDE [Suspect]
     Active Substance: TRAMADOL HYDROCHLORIDE
     Indication: Pain
     Dosage: USUAL THERAPY: 40 GTT/DAY?DOSE TAKEN FOR SELF-HARM PURPOSES: 1 BOTTLE OF DROPS
     Route: 048

REACTIONS (3)
  - Sopor [Recovered/Resolved]
  - Intentional self-injury [Recovered/Resolved]
  - Drug abuse [Recovered/Resolved]

NARRATIVE: CASE EVENT DATE: 20240218
